FAERS Safety Report 12072290 (Version 5)
Quarter: 2025Q4

REPORT INFORMATION
  Report Type: Spontaneous
  Country: EU (occurrence: EU)
  Receive Date: 20160212
  Receipt Date: 20251230
  Transmission Date: 20260118
  Serious: Yes (Death, Life-Threatening, Hospitalization, Other)
  Sender: NOVARTIS
  Company Number: PHHY2016FR018223

PATIENT
  Age: 56 Year
  Sex: Female
  Weight: 83 kg

DRUGS (27)
  1. FEMARA [Suspect]
     Active Substance: LETROZOLE
     Indication: Breast cancer
     Dosage: 2.5 MG, QD
     Route: 048
     Dates: start: 20110829, end: 20111027
  2. FEMARA [Suspect]
     Active Substance: LETROZOLE
     Indication: Breast cancer
     Dosage: UNK
     Route: 065
  3. FEMARA [Suspect]
     Active Substance: LETROZOLE
     Indication: Hormone therapy
  4. CYCLOPHOSPHAMIDE [Suspect]
     Active Substance: CYCLOPHOSPHAMIDE
     Indication: Breast cancer
     Dosage: 600 MG/M2 (CYCLICAL)
     Route: 042
     Dates: start: 20110421, end: 20110616
  5. CYCLOPHOSPHAMIDE [Suspect]
     Active Substance: CYCLOPHOSPHAMIDE
     Dosage: 600 MG/M2 (CYCLICAL)
     Route: 042
     Dates: start: 20110512, end: 20110512
  6. CYCLOPHOSPHAMIDE [Suspect]
     Active Substance: CYCLOPHOSPHAMIDE
     Dosage: 1 DOSAGE FORM (CYCLICAL) (1 DF,QCY )~FORM AND ROUTE- INTRAVENOUS INFUSION
     Route: 042
     Dates: start: 20110519, end: 20110519
  7. CYCLOPHOSPHAMIDE [Suspect]
     Active Substance: CYCLOPHOSPHAMIDE
     Dosage: 1 DOSAGE FORM (CYCLICAL)  (1 DF,QCY )FORM AND ROUTE- INTRAVENOUS INFUSION
     Route: 042
     Dates: start: 20110526, end: 20110526
  8. CYCLOPHOSPHAMIDE [Suspect]
     Active Substance: CYCLOPHOSPHAMIDE
     Dosage: 600 MG/M2 (CYCLICAL)
     Route: 042
     Dates: start: 20110603, end: 20110603
  9. CYCLOPHOSPHAMIDE [Suspect]
     Active Substance: CYCLOPHOSPHAMIDE
     Dosage: 1 DOSAGE FORM (CYCLICAL)   (1 DF,QCY ) FORM AND ROUTE- INTRAVENOUS INFUSION
     Route: 042
     Dates: start: 20110609, end: 20110609
  10. CYCLOPHOSPHAMIDE [Suspect]
     Active Substance: CYCLOPHOSPHAMIDE
     Dosage: 1 DOSAGE FORM (CYCLICAL)  (1 DF,QCY )
     Route: 042
     Dates: start: 20110616, end: 20110616
  11. CYCLOPHOSPHAMIDE [Suspect]
     Active Substance: CYCLOPHOSPHAMIDE
     Indication: Breast cancer
     Dosage: 600 MG/M2, 1 {CYCLICAL} (600 MG/M2,QCY)(INFUSION, FIRST COURSE)
     Route: 042
     Dates: start: 20110421, end: 20110616
  12. CYCLOPHOSPHAMIDE [Suspect]
     Active Substance: CYCLOPHOSPHAMIDE
     Indication: Breast cancer
     Dosage: 600 MG/M2, 1 {CYCLICAL} (600 MG/M2,QCY) (INFUSION, FIRST COURSE  )
     Route: 042
     Dates: start: 20110512, end: 20110512
  13. CYCLOPHOSPHAMIDE [Suspect]
     Active Substance: CYCLOPHOSPHAMIDE
     Dosage: 600 MG/M2, 1 {CYCLICAL} (600 MG/M2,QCY) (INFUSION, FIRST COURSE  )
     Route: 042
     Dates: start: 20110603, end: 20110603
  14. TAXOTERE [Suspect]
     Active Substance: DOCETAXEL
     Indication: Breast cancer
     Dosage: 75 MG/M2, CYCLICAL (INFUSION, SINGLE DOSE)
     Route: 042
     Dates: start: 20110421, end: 20110421
  15. TAXOTERE [Suspect]
     Active Substance: DOCETAXEL
     Indication: Breast cancer
  16. PACLITAXEL [Suspect]
     Active Substance: PACLITAXEL
     Indication: Breast cancer
     Dosage: 80 MG/M2, CYCLICAL (FORM AND ROUTE- INTRAVENOUS INFUSION)
     Route: 042
     Dates: start: 20110512, end: 20110512
  17. PACLITAXEL [Suspect]
     Active Substance: PACLITAXEL
     Indication: Breast cancer
     Dosage: 80 MG/M2, CYCLICAL (80 MG/M2,QCY )(FORM AND ROUTE- INTRAVENOUS INFUSION)
     Route: 042
     Dates: start: 20110519, end: 20110519
  18. PACLITAXEL [Suspect]
     Active Substance: PACLITAXEL
     Dosage: 80 MG/M2, CYCLICAL (80 MG/M2,QCY) (FORM AND ROUTE- INTRAVENOUS INFUSION)
     Route: 042
     Dates: start: 20110526, end: 20110526
  19. PACLITAXEL [Suspect]
     Active Substance: PACLITAXEL
     Dosage: 80 MG/M2, CYCLICAL (80 MG/M2,QCY) (FORM AND ROUTE- INTRAVENOUS INFUSION)
     Route: 042
     Dates: start: 20110603, end: 20110603
  20. PACLITAXEL [Suspect]
     Active Substance: PACLITAXEL
     Dosage: 80 MG/M2, CYCLICAL (80 MG/M2,QCY)(FORM AND ROUTE- INTRAVENOUS INFUSION)
     Route: 042
     Dates: start: 20110609, end: 20110609
  21. PACLITAXEL [Suspect]
     Active Substance: PACLITAXEL
     Dosage: 80 MG/M2, CYCLICAL (80 MG/M2,QCY )(FORM AND ROUTE- INTRAVENOUS INFUSION)
     Route: 042
     Dates: start: 20110616, end: 20110616
  22. AROMASIN [Suspect]
     Active Substance: EXEMESTANE
     Indication: Breast cancer
     Dosage: 25 MG, QD (DAILY)
     Route: 065
     Dates: start: 20111115, end: 20120403
  23. TAMOXIFEN CITRATE [Suspect]
     Active Substance: TAMOXIFEN CITRATE
     Indication: Breast cancer
     Dosage: UNK
     Route: 048
     Dates: start: 20120410, end: 20130910
  24. TAMOXIFEN [Suspect]
     Active Substance: TAMOXIFEN
     Indication: Breast cancer
     Dosage: UNK
     Route: 048
     Dates: start: 20120410, end: 20130910
  25. DOCETAXEL [Suspect]
     Active Substance: DOCETAXEL
     Indication: Breast cancer
     Dosage: (75 MG/M2, 1 {CYCLICAL}) INFUSION, SINGLE DOSE
     Route: 042
     Dates: start: 20110421, end: 20110421
  26. AMOXICILLIN\CLAVULANIC ACID [Concomitant]
     Active Substance: AMOXICILLIN\CLAVULANIC ACID
     Indication: Infection
     Dosage: 1 G, TID
     Route: 065
     Dates: start: 20110623, end: 20110630
  27. TAMOXIFEN [Concomitant]
     Active Substance: TAMOXIFEN
     Indication: Breast cancer
     Dosage: UNK
     Route: 048
     Dates: start: 2011, end: 201109

REACTIONS (49)
  - Chronic myelomonocytic leukaemia [Fatal]
  - Cardiac failure [Fatal]
  - Chronic myeloid leukaemia [Fatal]
  - Second primary malignancy [Fatal]
  - Toxic skin eruption [Recovering/Resolving]
  - Skin toxicity [Recovered/Resolved]
  - Cholecystitis [Unknown]
  - Malignant neoplasm progression [Unknown]
  - Acute myeloid leukaemia [Unknown]
  - Atrial fibrillation [Unknown]
  - Pulmonary arterial hypertension [Unknown]
  - Staphylococcal sepsis [Unknown]
  - Upper respiratory fungal infection [Unknown]
  - Lung disorder [Unknown]
  - Malaise [Unknown]
  - Orthostatic hypotension [Unknown]
  - Bone pain [Recovered/Resolved]
  - Drug eruption [Unknown]
  - Diarrhoea [Recovered/Resolved]
  - Anxiety [Unknown]
  - Insomnia [Unknown]
  - Arthralgia [Unknown]
  - Dermatitis acneiform [Unknown]
  - Epistaxis [Unknown]
  - Abdominal pain upper [Unknown]
  - Pyrexia [Unknown]
  - Neuromuscular toxicity [Unknown]
  - Dry mouth [Unknown]
  - Dyspnoea [Unknown]
  - Tachycardia [Unknown]
  - Pleural effusion [Unknown]
  - Headache [Unknown]
  - Sleep disorder [Unknown]
  - Nausea [Unknown]
  - Splenomegaly [Unknown]
  - Marrow hyperplasia [Unknown]
  - Chest pain [Unknown]
  - White blood cell count increased [Unknown]
  - Generalised oedema [Not Recovered/Not Resolved]
  - Decubitus ulcer [Not Recovered/Not Resolved]
  - Blood pressure abnormal [Unknown]
  - Device related infection [Unknown]
  - Pneumonia [Unknown]
  - Enterocolitis [Unknown]
  - Clostridium difficile infection [Unknown]
  - Hyponatraemia [Unknown]
  - Acute pulmonary oedema [Unknown]
  - Hyperkalaemia [Unknown]
  - Syncope [Unknown]

NARRATIVE: CASE EVENT DATE: 20110101
